FAERS Safety Report 12915128 (Version 1)
Quarter: 2016Q4

REPORT INFORMATION
  Report Type: Spontaneous
  Country: US (occurrence: US)
  Receive Date: 20161106
  Receipt Date: 20161106
  Transmission Date: 20170207
  Serious: No
  Sender: FDA-Public Use
  Company Number: US-RELYPSA-RLY2016002464

PATIENT
  Age: 77 Year
  Sex: Male

DRUGS (15)
  1. PANTOPRAZOLE SODIUM. [Concomitant]
     Active Substance: PANTOPRAZOLE SODIUM
  2. VITAMIN D2 [Concomitant]
     Active Substance: ERGOCALCIFEROL
  3. DUTASTERIDE. [Concomitant]
     Active Substance: DUTASTERIDE
  4. TORSEMIDE. [Concomitant]
     Active Substance: TORSEMIDE
  5. PRANDIN [Concomitant]
     Active Substance: REPAGLINIDE
  6. ISRADIPINE. [Concomitant]
     Active Substance: ISRADIPINE
  7. CYTRA-2 [Concomitant]
     Active Substance: CITRIC ACID MONOHYDRATE\TRISODIUM CITRATE DIHYDRATE
  8. TRADJENTA [Concomitant]
     Active Substance: LINAGLIPTIN
  9. BYSTOLIC [Concomitant]
     Active Substance: NEBIVOLOL HYDROCHLORIDE
  10. MAGNESIUM OXIDE. [Concomitant]
     Active Substance: MAGNESIUM OXIDE
  11. ATORVASTATIN CALCIUM. [Concomitant]
     Active Substance: ATORVASTATIN CALCIUM
  12. LANTUS [Concomitant]
     Active Substance: INSULIN GLARGINE
  13. RAPAFLO [Concomitant]
     Active Substance: SILODOSIN
  14. NOVOLOG [Concomitant]
     Active Substance: INSULIN ASPART
  15. VELTASSA [Suspect]
     Active Substance: PATIROMER
     Indication: PRODUCT USED FOR UNKNOWN INDICATION
     Dosage: 16.8 G, QD
     Route: 048
     Dates: start: 20160907

REACTIONS (1)
  - Constipation [Unknown]

NARRATIVE: CASE EVENT DATE: 201609
